FAERS Safety Report 6550334-X (Version None)
Quarter: 2010Q1

REPORT INFORMATION
  Report Type: 
  Country: None (occurrence: None)
  Receive Date: 20100125
  Receipt Date: 20100119
  Transmission Date: 20100710
  Serious: Yes (Other)
  Sender: FDA-Public Use
  Company Number: US-RB-001151-10

PATIENT
  Age: 54 Year
  Sex: Female

DRUGS (1)
  1. SUBOXONE [Suspect]
     Indication: DRUG USE FOR UNKNOWN INDICATION
     Dosage: DOSING DETAILS UNKNOWN
     Route: 065

REACTIONS (7)
  - DYSPNOEA [None]
  - EMPHYSEMA [None]
  - LUNG DISORDER [None]
  - LUNG NEOPLASM [None]
  - SLEEP APNOEA SYNDROME [None]
  - THROAT TIGHTNESS [None]
  - URTICARIA [None]
